FAERS Safety Report 21327891 (Version 2)
Quarter: 2025Q2

REPORT INFORMATION
  Report Type: Spontaneous
  Country: DE (occurrence: DE)
  Receive Date: 20220913
  Receipt Date: 20250528
  Transmission Date: 20250716
  Serious: Yes (Other)
  Sender: AUROBINDO
  Company Number: DE-ROCHE-2723179

PATIENT
  Age: 31 Year
  Sex: Male

DRUGS (5)
  1. RIBAVIRIN [Suspect]
     Active Substance: RIBAVIRIN
     Indication: Hepatitis E
     Route: 065
  2. CYTARABINE [Suspect]
     Active Substance: CYTARABINE
     Indication: Lymphoma
     Route: 065
     Dates: start: 201304
  3. MABTHERA [Suspect]
     Active Substance: RITUXIMAB
     Indication: Lymphoma
     Route: 042
     Dates: start: 201304
  4. MYCOPHENOLATE MOFETIL [Suspect]
     Active Substance: MYCOPHENOLATE MOFETIL
     Indication: Prophylaxis against transplant rejection
     Route: 065
  5. PREDNISOLONE [Suspect]
     Active Substance: PREDNISOLONE
     Indication: Prophylaxis against transplant rejection
     Route: 065
     Dates: start: 2015

REACTIONS (6)
  - Hypogammaglobulinaemia [Unknown]
  - Thrombocytopenia [Unknown]
  - Hepatitis E [Unknown]
  - Transplant failure [Unknown]
  - Suspected transmission of an infectious agent via product [Unknown]
  - Off label use [Unknown]

NARRATIVE: CASE EVENT DATE: 20150101
